FAERS Safety Report 7095993-0 (Version None)
Quarter: 2010Q4

REPORT INFORMATION
  Report Type: 
  Country: None (occurrence: None)
  Receive Date: 20101102
  Receipt Date: 20101020
  Transmission Date: 20110411
  Serious: Yes (Death, Other)
  Sender: FDA-Public Use
  Company Number: MOZO-1000268

PATIENT
  Age: 48 Year
  Sex: Female
  Weight: 117 kg

DRUGS (4)
  1. MOZOBIL [Suspect]
     Indication: HAEMATOPOIETIC STEM CELL MOBILISATION
     Dosage: 240 MCG/KG, QD 240 MCG/KG, QD, SUBCUTANEOUS
     Route: 058
     Dates: start: 20090628, end: 20090629
  2. MOZOBIL [Suspect]
     Indication: MULTIPLE MYELOMA
     Dosage: 240 MCG/KG, QD 240 MCG/KG, QD, SUBCUTANEOUS
     Route: 058
     Dates: start: 20090628, end: 20090629
  3. WARFARIN SODIUM [Concomitant]
  4. INSULIN (INSULIN) [Concomitant]

REACTIONS (4)
  - INTERVERTEBRAL DISC DEGENERATION [None]
  - MALIGNANT NEOPLASM PROGRESSION [None]
  - MYELOMA RECURRENCE [None]
  - PLASMACYTOMA [None]
